FAERS Safety Report 11661189 (Version 3)
Quarter: 2015Q4

REPORT INFORMATION
  Report Type: Report from Study
  Country: US (occurrence: US)
  Receive Date: 20151026
  Receipt Date: 20151125
  Transmission Date: 20160304
  Serious: Yes (Hospitalization)
  Sender: FDA-Public Use
  Company Number: US-VERTEX PHARMACEUTICALS-2015-003078

PATIENT
  Sex: Male

DRUGS (13)
  1. SINGULAIR [Concomitant]
     Active Substance: MONTELUKAST SODIUM
  2. ADVAIR HFA [Concomitant]
     Active Substance: FLUTICASONE PROPIONATE\SALMETEROL XINAFOATE
  3. TOBRAMYCIN. [Concomitant]
     Active Substance: TOBRAMYCIN
  4. ORKAMBI [Suspect]
     Active Substance: IVACAFTOR\LUMACAFTOR
     Indication: CYSTIC FIBROSIS
     Dosage: 400 MG/250 MG, EVERY 12 HOURS
     Route: 048
     Dates: start: 20150729
  5. PULMOZYME [Concomitant]
     Active Substance: DORNASE ALFA
  6. LEVEMIR [Concomitant]
     Active Substance: INSULIN DETEMIR
  7. ATIVAN [Concomitant]
     Active Substance: LORAZEPAM
     Dosage: UNK, PRN
  8. ZENPEP [Concomitant]
     Active Substance: PANCRELIPASE\PANCRELIPASE AMYLASE\PANCRELIPASE LIPASE\PANCRELIPASE PROTEASE
  9. MEROPENEM. [Concomitant]
     Active Substance: MEROPENEM
  10. HUMALOG [Concomitant]
     Active Substance: INSULIN LISPRO
  11. OXYCODONE [Concomitant]
     Active Substance: OXYCODONE
  12. CLARITIN [Concomitant]
     Active Substance: LORATADINE
  13. AQUADEKS [Concomitant]

REACTIONS (1)
  - Infective pulmonary exacerbation of cystic fibrosis [Recovering/Resolving]
